FAERS Safety Report 9336751 (Version 1)
Quarter: 2013Q2

REPORT INFORMATION
  Report Type: Spontaneous
  Country: CA (occurrence: CA)
  Receive Date: 20130607
  Receipt Date: 20130607
  Transmission Date: 20140414
  Serious: Yes (Death)
  Sender: FDA-Public Use
  Company Number: PHHY2013CA057542

PATIENT
  Age: 52 Year
  Sex: Male
  Weight: 80 kg

DRUGS (3)
  1. SIMULECT [Suspect]
     Dosage: UNK UKN, UNK
  2. CELLCEPT [Suspect]
     Dosage: UNK UKN, UNK
  3. ADVAGRAF [Suspect]
     Dosage: UNK UKN, UNK

REACTIONS (2)
  - Hepatitis cholestatic [Fatal]
  - Hepatitis C [Fatal]
